FAERS Safety Report 19030583 (Version 3)
Quarter: 2021Q2

REPORT INFORMATION
  Report Type: Report from Study
  Country: EG (occurrence: EG)
  Receive Date: 20210319
  Receipt Date: 20210527
  Transmission Date: 20210717
  Serious: Yes (Disabling, Other)
  Sender: FDA-Public Use
  Company Number: EG-REGENERON PHARMACEUTICALS, INC.-2021-34220

PATIENT

DRUGS (2)
  1. EYLEA [Suspect]
     Active Substance: AFLIBERCEPT
     Indication: CORNEAL INFECTION
     Dosage: 1 DF, ONCE (OS)
     Route: 031
     Dates: start: 20200628, end: 20200628
  2. EYLEA [Suspect]
     Active Substance: AFLIBERCEPT
     Dosage: 1 DF, ONCE (OS, LAST ADMINISTRATION)
     Route: 031
     Dates: start: 20200819, end: 20200819

REACTIONS (6)
  - Metamorphopsia [Unknown]
  - Visual impairment [Unknown]
  - Blindness [Recovered/Resolved with Sequelae]
  - Drug ineffective [Not Recovered/Not Resolved]
  - Off label use [Not Recovered/Not Resolved]
  - Product use in unapproved indication [Not Recovered/Not Resolved]

NARRATIVE: CASE EVENT DATE: 20200628
